FAERS Safety Report 8974645 (Version 1)
Quarter: 2012Q4

REPORT INFORMATION
  Report Type: Report from Study
  Country: FR (occurrence: FR)
  Receive Date: 20121219
  Receipt Date: 20121219
  Transmission Date: 20130627
  Serious: Yes (Death, Hospitalization)
  Sender: FDA-Public Use
  Company Number: FR-ROCHE-668587

PATIENT
  Age: 31 Year
  Sex: Female
  Weight: 49 kg

DRUGS (6)
  1. RITUXIMAB [Suspect]
     Indication: RHEUMATOID ARTHRITIS
     Route: 042
  2. RITUXIMAB [Suspect]
     Dosage: FORM: INFUSION
     Route: 042
     Dates: start: 20090918, end: 20090918
  3. IMUREL [Suspect]
     Indication: RHEUMATOID ARTHRITIS
     Route: 048
     Dates: start: 200901, end: 20090928
  4. CORTISONE [Concomitant]
     Route: 065
  5. ZOMIGORO [Concomitant]
     Indication: MIGRAINE
     Route: 065
  6. DAFALGAN [Concomitant]
     Indication: PAIN
     Dosage: 1 OR 2 TABLETS IF PAIN.
     Route: 065

REACTIONS (3)
  - Hepatocellular injury [Fatal]
  - Pulseless electrical activity [Fatal]
  - Herpes virus infection [Fatal]
